FAERS Safety Report 5134959-4 (Version None)
Quarter: 2006Q4

REPORT INFORMATION
  Report Type: 
  Country: None (occurrence: None)
  Receive Date: 20061019
  Receipt Date: 20061010
  Transmission Date: 20070319
  Serious: Yes (Hospitalization)
  Sender: FDA-Public Use
  Company Number: 2006BI013252

PATIENT
  Age: 48 Year
  Sex: Male

DRUGS (5)
  1. AVONEX [Suspect]
     Indication: MULTIPLE SCLEROSIS
     Dosage: 30 UG, QW; IM
     Route: 030
     Dates: start: 20030321
  2. BACLOFEN [Concomitant]
  3. VALIUM [Concomitant]
  4. WELLBUTRIN [Concomitant]
  5. VICODIN [Concomitant]

REACTIONS (11)
  - DYSSTASIA [None]
  - FALL [None]
  - FEELING HOT [None]
  - HYPOAESTHESIA [None]
  - INFLUENZA LIKE ILLNESS [None]
  - INTERVERTEBRAL DISC PROTRUSION [None]
  - JOINT STIFFNESS [None]
  - MUSCLE TIGHTNESS [None]
  - NERVE COMPRESSION [None]
  - PAIN OF SKIN [None]
  - TREMOR [None]
